FAERS Safety Report 6734469-4 (Version None)
Quarter: 2010Q2

REPORT INFORMATION
  Report Type: 
  Country: None (occurrence: None)
  Receive Date: 20100520
  Receipt Date: 20100507
  Transmission Date: 20101027
  Serious: Yes (Hospitalization, Other)
  Sender: FDA-Public Use
  Company Number: US-ELI_LILLY_AND_COMPANY-US200908005046

PATIENT
  Sex: Female

DRUGS (9)
  1. FORTEO [Suspect]
     Indication: OSTEOPOROSIS
     Dosage: 20 UG, DAILY (1/D)
     Dates: start: 20090508, end: 20090729
  2. FORTEO [Suspect]
     Dosage: 20 UG, DAILY (1/D)
     Dates: start: 20090901
  3. CALCIUM [Concomitant]
  4. VITAMIN D [Concomitant]
  5. PRESERVISION LUTEIN EYE VITA.+MIN.SUP.SOFTG. [Concomitant]
  6. MULTI-VITAMIN [Concomitant]
  7. LISINOPRIL [Concomitant]
     Dosage: 2.5 MG, UNK
  8. RHINOCORT [Concomitant]
     Indication: HYPERSENSITIVITY
  9. ANTIHYPERTENSIVES [Concomitant]

REACTIONS (6)
  - FALL [None]
  - GROIN PAIN [None]
  - HIP FRACTURE [None]
  - INJECTION SITE ERYTHEMA [None]
  - SYNCOPE [None]
  - UNEQUAL LIMB LENGTH [None]
